FAERS Safety Report 7718329-8 (Version None)
Quarter: 2011Q3

REPORT INFORMATION
  Report Type: 
  Country: None (occurrence: None)
  Receive Date: 20110830
  Receipt Date: 20110823
  Transmission Date: 20111222
  Serious: No
  Sender: FDA-Public Use
  Company Number: US-PFIZER INC-2011196033

PATIENT
  Age: 60 Year
  Sex: Male

DRUGS (1)
  1. SUTENT [Suspect]
     Indication: METASTATIC RENAL CELL CARCINOMA
     Route: 048

REACTIONS (10)
  - DIARRHOEA [None]
  - MYALGIA [None]
  - SKIN SENSITISATION [None]
  - INFLUENZA LIKE ILLNESS [None]
  - YELLOW SKIN [None]
  - FATIGUE [None]
  - HYPERTENSION [None]
  - NAUSEA [None]
  - ARTHRALGIA [None]
  - HAIR COLOUR CHANGES [None]
